FAERS Safety Report 7235581-6 (Version None)
Quarter: 2011Q1

REPORT INFORMATION
  Report Type: 
  Country: None (occurrence: None)
  Receive Date: 20110120
  Receipt Date: 20110117
  Transmission Date: 20110831
  Serious: Yes (Death)
  Sender: FDA-Public Use
  Company Number: PHHY2010US76391

PATIENT
  Sex: Male

DRUGS (10)
  1. ATENOLOL [Concomitant]
  2. ASA [Concomitant]
  3. ZITHROMAX [Concomitant]
  4. FLOMAX [Concomitant]
  5. PROSCAR [Concomitant]
  6. VITAMIN E [Concomitant]
  7. CLOZARIL [Suspect]
     Indication: SCHIZOPHRENIA
     Dosage: 162.5 MG, QD
     Route: 048
     Dates: start: 20020101
  8. CLOZARIL [Suspect]
     Dosage: 62.5 MG DAILY
     Route: 048
  9. CITRUCEL [Concomitant]
  10. PRILOSEC [Concomitant]

REACTIONS (1)
  - MYOCARDIAL INFARCTION [None]
